FAERS Safety Report 10181878 (Version 1)
Quarter: 2014Q2

REPORT INFORMATION
  Report Type: Spontaneous
  Country: US (occurrence: US)
  Receive Date: 20140519
  Receipt Date: 20140519
  Transmission Date: 20141212
  Serious: No
  Sender: FDA-Public Use
  Company Number: US-ASTRAZENECA-2013SE58732

PATIENT
  Age: 90 Year
  Sex: Female

DRUGS (3)
  1. ATACAND [Suspect]
     Indication: HYPERTENSION
     Route: 048
     Dates: start: 2011
  2. ATACAND [Suspect]
     Indication: CARDIAC FAILURE CONGESTIVE
     Route: 048
     Dates: start: 2011
  3. CLONODINE [Concomitant]

REACTIONS (5)
  - Blood pressure inadequately controlled [Unknown]
  - Hypersensitivity [Unknown]
  - Lip pruritus [Unknown]
  - Pruritus [Unknown]
  - Lip swelling [Unknown]
